FAERS Safety Report 8436074-0 (Version None)
Quarter: 2012Q2

REPORT INFORMATION
  Report Type: 
  Country: None (occurrence: None)
  Receive Date: 20120614
  Receipt Date: 20120607
  Transmission Date: 20120825
  Serious: Yes (Hospitalization)
  Sender: FDA-Public Use
  Company Number: HK-ROCHE-1076912

PATIENT
  Sex: Male
  Weight: 69.7 kg

DRUGS (10)
  1. AVASTIN [Suspect]
     Route: 042
     Dates: start: 20090909
  2. ROFERON-A [Suspect]
     Indication: RENAL CELL CARCINOMA
     Dates: start: 20090617, end: 20090619
  3. PEPCIDINE [Concomitant]
     Dates: start: 20090529
  4. ACETAMINOPHEN [Concomitant]
     Dates: start: 20090617
  5. ROFERON-A [Suspect]
     Dates: start: 20090909
  6. AVASTIN [Suspect]
     Indication: RENAL CELL CARCINOMA
     Route: 042
     Dates: start: 20090617, end: 20090617
  7. ROFERON-A [Suspect]
     Dates: start: 20090629, end: 20090812
  8. PIPERACILLIN [Concomitant]
     Dates: start: 20090529
  9. AVASTIN [Suspect]
     Dates: start: 20091125
  10. DICLOGESIC RELAX [Concomitant]
     Dates: start: 20090529

REACTIONS (8)
  - RENAL CELL CARCINOMA RECURRENT [None]
  - ABDOMINAL PAIN [None]
  - NEOPLASM PROGRESSION [None]
  - ANAEMIA [None]
  - VOMITING [None]
  - DIARRHOEA [None]
  - PYREXIA [None]
  - INTRA-ABDOMINAL HAEMATOMA [None]
